FAERS Safety Report 20909647 (Version 1)
Quarter: 2022Q2

REPORT INFORMATION
  Report Type: Spontaneous
  Country: US (occurrence: US)
  Receive Date: 20220603
  Receipt Date: 20220603
  Transmission Date: 20220720
  Serious: No
  Sender: FDA-Public Use
  Company Number: US-OTSUKA-2021_031693

PATIENT
  Age: 74 Year
  Sex: Male

DRUGS (1)
  1. SAMSCA [Suspect]
     Active Substance: TOLVAPTAN
     Indication: Product used for unknown indication
     Dosage: 15 MG
     Route: 065

REACTIONS (2)
  - Irritability [Unknown]
  - Product dose omission issue [Unknown]

NARRATIVE: CASE EVENT DATE: 20210901
